FAERS Safety Report 8472261-3 (Version None)
Quarter: 2012Q2

REPORT INFORMATION
  Report Type: 
  Country: None (occurrence: None)
  Receive Date: 20120622
  Receipt Date: 20120622
  Transmission Date: 20120825
  Serious: Yes (Other)
  Sender: FDA-Public Use
  Company Number: None

PATIENT
  Sex: Female

DRUGS (1)
  1. ETHINYL ESTRADIOL AND LEVONORGESTREL [Suspect]
     Indication: CONTRACEPTION
     Dosage: 1 (ONCE A DAY PO
     Route: 048

REACTIONS (7)
  - MENTAL IMPAIRMENT [None]
  - PAIN [None]
  - HUNGER [None]
  - NAUSEA [None]
  - FATIGUE [None]
  - HAEMORRHAGE [None]
  - MIGRAINE [None]
